FAERS Safety Report 8941938 (Version 1)
Quarter: 2012Q4

REPORT INFORMATION
  Report Type: 
  Country: BR (occurrence: BR)
  Receive Date: 20121130
  Receipt Date: 20121130
  Transmission Date: 20130627
  Serious: Yes (Death, Hospitalization, Other)
  Sender: FDA-Public Use
  Company Number: BR-ABBOTT-12P-020-1007204-00

PATIENT
  Sex: Female

DRUGS (4)
  1. HUMIRA [Suspect]
     Indication: CROHN^S DISEASE
  2. HUMIRA [Suspect]
     Indication: ANAL FISTULA
  3. AZATHIOPRINE [Concomitant]
     Indication: CROHN^S DISEASE
     Dates: start: 2007, end: 201211
  4. AZATHIOPRINE [Concomitant]
     Indication: ANAL FISTULA

REACTIONS (8)
  - Multi-organ failure [Fatal]
  - Abdominal pain [Unknown]
  - Immunosuppression [Unknown]
  - Sepsis [Fatal]
  - Peritonitis [Unknown]
  - Malnutrition [Unknown]
  - Large intestine perforation [Unknown]
  - Crohn^s disease [Fatal]
